FAERS Safety Report 9325498 (Version 1)
Quarter: 2013Q2

REPORT INFORMATION
  Report Type: Spontaneous
  Country: US (occurrence: None)
  Receive Date: 20130531
  Receipt Date: 20130531
  Transmission Date: 20140414
  Serious: Yes (Life-Threatening)
  Sender: FDA-Public Use
  Company Number: None

PATIENT
  Age: 48 Year
  Sex: Female
  Weight: 53.07 kg

DRUGS (1)
  1. ZOLPIDEM [Suspect]
     Indication: SLEEP DISORDER
     Dosage: AS NEEDED
     Route: 050
     Dates: start: 20130529, end: 20130529

REACTIONS (5)
  - Dizziness [None]
  - Disorientation [None]
  - Nausea [None]
  - Vomiting [None]
  - Loss of consciousness [None]
